FAERS Safety Report 7662883-1 (Version None)
Quarter: 2011Q3

REPORT INFORMATION
  Report Type: 
  Country: None (occurrence: None)
  Receive Date: 20110805
  Receipt Date: 20100825
  Transmission Date: 20111222
  Serious: No
  Sender: FDA-Public Use
  Company Number: US-ABBOTT-10P-163-0667556-00

PATIENT
  Sex: Female

DRUGS (5)
  1. KLONOPIN [Concomitant]
     Indication: ANXIETY
  2. NIASPAN [Suspect]
     Indication: BLOOD TRIGLYCERIDES INCREASED
  3. PAXIL [Concomitant]
     Indication: DEPRESSION
  4. IBUPROFEN [Concomitant]
     Indication: PAIN
  5. NIASPAN [Suspect]
     Indication: BLOOD CHOLESTEROL INCREASED
     Dates: start: 20100817, end: 20100821

REACTIONS (3)
  - RASH [None]
  - BURNING SENSATION [None]
  - UNEVALUABLE EVENT [None]
